FAERS Safety Report 24078490 (Version 2)
Quarter: 2025Q2

REPORT INFORMATION
  Report Type: Spontaneous
  Country: US (occurrence: US)
  Receive Date: 20240711
  Receipt Date: 20250507
  Transmission Date: 20250716
  Serious: Yes (Other)
  Sender: SANDOZ
  Company Number: US-INCYTE CORPORATION-2024IN002337

PATIENT
  Age: 72 Year
  Sex: Female

DRUGS (13)
  1. CALCIUM [Concomitant]
     Active Substance: CALCIUM
     Indication: Product used for unknown indication
     Route: 065
  2. COENZYME Q10 [Concomitant]
     Active Substance: DIETARY SUPPLEMENT\UBIDECARENONE
     Indication: Product used for unknown indication
     Route: 065
  3. GAS RELIEF [Concomitant]
     Active Substance: DIMETHICONE
     Indication: Product used for unknown indication
     Route: 065
  4. MAGNESIUM [Concomitant]
     Active Substance: MAGNESIUM
     Indication: Product used for unknown indication
     Route: 065
  5. VITAMINS [Concomitant]
     Active Substance: VITAMINS
     Indication: Product used for unknown indication
     Route: 065
  6. TOLNAFTATE [Concomitant]
     Active Substance: TOLNAFTATE
     Indication: Product used for unknown indication
     Route: 065
  7. VITAMIN D [Concomitant]
     Active Substance: VITAMIN D NOS
     Indication: Product used for unknown indication
     Route: 065
  8. ZINC [Concomitant]
     Active Substance: ZINC
     Indication: Product used for unknown indication
     Route: 065
  9. JAKAFI [Interacting]
     Active Substance: RUXOLITINIB
     Indication: Myelofibrosis
     Dosage: 10 MG, BID
     Route: 048
  10. JAKAFI [Interacting]
     Active Substance: RUXOLITINIB
     Dosage: 5 MG, BID
     Route: 048
  11. JAKAFI [Interacting]
     Active Substance: RUXOLITINIB
     Indication: Marrow hyperplasia
     Dosage: 10 MG, BID
     Route: 048
  12. JAKAFI [Interacting]
     Active Substance: RUXOLITINIB
     Dosage: 5 MG, BID (ON MON, WED, AND FRIDAY  5MG IN THE AM + 10MG IN THE PM ON  TUES, THURS, SAT + SUNDAY)
     Route: 048
  13. PANTOPRAZOLE [Interacting]
     Active Substance: PANTOPRAZOLE
     Indication: Product used for unknown indication
     Route: 065

REACTIONS (24)
  - Blindness [Unknown]
  - Visual impairment [Unknown]
  - Drug interaction [Unknown]
  - Splenomegaly [Recovering/Resolving]
  - Hypophagia [Unknown]
  - Blood iron decreased [Unknown]
  - Chills [Unknown]
  - COVID-19 [Unknown]
  - Flatulence [Unknown]
  - Fungal infection [Unknown]
  - Pain [Unknown]
  - Platelet count increased [Unknown]
  - Haematocrit increased [Unknown]
  - Pruritus [Unknown]
  - Fatigue [Unknown]
  - Hypersensitivity [Unknown]
  - Depression [Unknown]
  - Constipation [Unknown]
  - Arthralgia [Unknown]
  - Asthenia [Unknown]
  - Headache [Unknown]
  - Abdominal pain upper [Unknown]
  - Product dose omission issue [Unknown]
  - Product dose omission in error [Unknown]
